FAERS Safety Report 14148950 (Version 1)
Quarter: 2017Q4

REPORT INFORMATION
  Report Type: Spontaneous
  Country: AT (occurrence: AT)
  Receive Date: 20171101
  Receipt Date: 20171101
  Transmission Date: 20180321
  Serious: Yes (Other)
  Sender: FDA-Public Use
  Company Number: AT-BAYER-2017-141993

PATIENT
  Sex: Male

DRUGS (1)
  1. REGORAFENIB [Suspect]
     Active Substance: REGORAFENIB
     Indication: HEPATOCELLULAR CARCINOMA

REACTIONS (4)
  - Hepatocellular carcinoma [None]
  - Pre-existing condition improved [None]
  - Off label use [None]
  - Product use in unapproved indication [None]
